FAERS Safety Report 23650100 (Version 1)
Quarter: 2024Q1

REPORT INFORMATION
  Report Type: Spontaneous
  Country: US (occurrence: None)
  Receive Date: 20240319
  Receipt Date: 20240319
  Transmission Date: 20240410
  Serious: No
  Sender: FDA-Public Use
  Company Number: US-ROCHE-3467764

PATIENT
  Age: 52 Year
  Sex: Female
  Weight: 55.388 kg

DRUGS (11)
  1. ERIVEDGE [Suspect]
     Active Substance: VISMODEGIB
     Indication: Basal cell carcinoma
     Dosage: THERAPY START DATE: 02/OCT/2023?TAKES IN THE MORNING
     Route: 048
  2. ATORVASTATIN [Concomitant]
     Active Substance: ATORVASTATIN
     Dosage: MECHANICAL AORTIC AND MITRAL HEART VALVES
     Dates: start: 20181207
  3. BUMETANIDE [Concomitant]
     Active Substance: BUMETANIDE
     Dosage: MECHANICAL AORTIC AND MITRAL HEART VALVES
     Route: 048
  4. METOPROLOL [Concomitant]
     Active Substance: METOPROLOL
     Dosage: MECHANICAL AORTIC AND MITRAL HEART VALVES
     Route: 048
     Dates: start: 20181207
  5. WARFARIN [Concomitant]
     Active Substance: WARFARIN
     Dosage: MECHANICAL AORTIC AND MITRAL HEART VALVES?TAKES IN THE EVENING
     Dates: start: 20181207
  6. ZINC [Concomitant]
     Active Substance: PYRITHIONE ZINC\ZINC\ZINC CHLORIDE
     Dosage: MECHANICAL AORTIC AND MITRAL HEART VALVES
     Route: 048
     Dates: start: 20181207
  7. HERBALS [Concomitant]
     Active Substance: HERBALS
     Dosage: MECHANICAL AORTIC AND MITRAL HEART VALVES
     Dates: start: 20181207
  8. DIETARY SUPPLEMENT\HERBALS\MILK THISTLE [Concomitant]
     Active Substance: MILK THISTLE
     Dosage: MECHANICAL AORTIC AND MITRAL HEART VALVES
     Dates: start: 20181207
  9. VITAMIN D3 [Concomitant]
     Active Substance: CHOLECALCIFEROL
     Dosage: MECHANICAL AORTIC AND MITRAL HEART VALVES
     Route: 048
  10. MINERALS\VITAMINS [Concomitant]
     Active Substance: MINERALS\VITAMINS
     Dosage: MECHANICAL AORTIC AND MITRAL HEART VALVES?MIXES WITH WATER EVERY MORNING
     Route: 048
  11. VITAMIN C [Concomitant]
     Active Substance: ASCORBIC ACID
     Dosage: MECHANICAL AORTIC AND MITRAL HEART VALVES
     Route: 048
     Dates: start: 20181207

REACTIONS (7)
  - Ocular hyperaemia [Not Recovered/Not Resolved]
  - Muscle spasms [Unknown]
  - Ageusia [Unknown]
  - Weight decreased [Unknown]
  - Eye swelling [Recovering/Resolving]
  - Cardiac failure congestive [Recovered/Resolved]
  - Peripheral swelling [Recovered/Resolved]

NARRATIVE: CASE EVENT DATE: 20231001
